FAERS Safety Report 20636800 (Version 1)
Quarter: 2022Q1

REPORT INFORMATION
  Report Type: Spontaneous
  Country: DE (occurrence: DE)
  Receive Date: 20220325
  Receipt Date: 20220325
  Transmission Date: 20220423
  Serious: Yes (Other)
  Sender: FDA-Public Use
  Company Number: DE-MLMSERVICE-20220322-3446682-1

PATIENT
  Sex: Female

DRUGS (6)
  1. PYRAZINAMIDE [Concomitant]
     Active Substance: PYRAZINAMIDE
     Indication: Tuberculosis
     Route: 065
  2. MOXIFLOXACIN [Suspect]
     Active Substance: MOXIFLOXACIN
     Indication: Tuberculosis
     Route: 065
  3. PROTIONAMIDE [Concomitant]
     Active Substance: PROTIONAMIDE
     Indication: Tuberculosis
     Dosage: UNKNOWN
     Route: 065
  4. AMIKACIN [Concomitant]
     Active Substance: AMIKACIN
     Indication: Tuberculosis
     Dosage: UNKNOWN
     Route: 065
  5. TERIZIDONE [Concomitant]
     Active Substance: TERIZIDONE
     Indication: Tuberculosis
     Dosage: UNKNOWN
     Route: 065
  6. ETHAMBUTOL [Concomitant]
     Active Substance: ETHAMBUTOL HYDROCHLORIDE
     Indication: Tuberculosis
     Dosage: UNKNOWN
     Route: 065

REACTIONS (2)
  - Drug eruption [Unknown]
  - Pseudomembranous colitis [Recovered/Resolved with Sequelae]
